FAERS Safety Report 5503568-7 (Version None)
Quarter: 2007Q4

REPORT INFORMATION
  Report Type: 
  Country: None (occurrence: None)
  Receive Date: 20071029
  Receipt Date: 20071012
  Transmission Date: 20080405
  Serious: Yes (Other)
  Sender: FDA-Public Use
  Company Number: 2007S1009912

PATIENT
  Age: 33 Year
  Sex: Male

DRUGS (6)
  1. ENDEP [Suspect]
     Indication: BONE PAIN
     Dosage: 50 MG; HD; ORAL; 10 MG; HD; ORAL
     Route: 048
     Dates: start: 20071006, end: 20071012
  2. ENDEP [Suspect]
     Indication: NEURALGIA
     Dosage: 50 MG; HD; ORAL; 10 MG; HD; ORAL
     Route: 048
     Dates: start: 20071006, end: 20071012
  3. ENDEP [Suspect]
     Indication: BONE PAIN
     Dosage: 50 MG; HD; ORAL; 10 MG; HD; ORAL
     Route: 048
     Dates: start: 20071017
  4. ENDEP [Suspect]
     Indication: NEURALGIA
     Dosage: 50 MG; HD; ORAL; 10 MG; HD; ORAL
     Route: 048
     Dates: start: 20071017
  5. PANADEINE /00116401/ [Concomitant]
  6. BRUFEN /00109201/ [Concomitant]

REACTIONS (7)
  - AGITATION [None]
  - ANXIETY [None]
  - DELUSION [None]
  - NIGHTMARE [None]
  - NO REACTION ON PREVIOUS EXPOSURE TO DRUG [None]
  - PARANOIA [None]
  - URINARY RETENTION [None]
